FAERS Safety Report 5894897-6 (Version None)
Quarter: 2008Q3

REPORT INFORMATION
  Report Type: 
  Country: None (occurrence: None)
  Receive Date: 20080924
  Receipt Date: 20080916
  Transmission Date: 20090109
  Serious: Yes (Other)
  Sender: FDA-Public Use
  Company Number: PHHY2008HN20040

PATIENT
  Age: 19 Year
  Sex: Male

DRUGS (3)
  1. ELIDEL [Suspect]
     Indication: DERMATITIS
     Dosage: 10 MG/G
  2. PROTOPIC [Concomitant]
  3. STEROIDS NOS [Concomitant]

REACTIONS (1)
  - LYMPHOMA [None]
